FAERS Safety Report 4922882-7 (Version None)
Quarter: 2006Q1

REPORT INFORMATION
  Report Type: 
  Country: None (occurrence: None)
  Receive Date: 20060221
  Receipt Date: 20060202
  Transmission Date: 20060701
  Serious: Yes (Hospitalization)
  Sender: FDA-Public Use
  Company Number: 222101

PATIENT
  Age: 72 Year
  Sex: Female

DRUGS (4)
  1. AVASTIN [Suspect]
     Indication: COLORECTAL CANCER
     Dosage: 425 MG Q3W INTRAVENOUS
     Route: 042
     Dates: start: 20060126, end: 20060206
  2. CAPECITABINE (CAPECITABINE) [Suspect]
     Indication: COLORECTAL CANCER
     Dosage: 1650 MG BID ORAL
     Route: 048
     Dates: start: 20060126
  3. OXALIPLATIN (OXALIPLATIN) [Suspect]
     Indication: COLORECTAL CANCER
     Dosage: 215 M3W INTRAVENOUS
     Route: 042
     Dates: start: 20060126, end: 20060126
  4. ONDANSETRON [Concomitant]

REACTIONS (1)
  - PYREXIA [None]
